FAERS Safety Report 14230669 (Version 1)
Quarter: 2017Q4

REPORT INFORMATION
  Report Type: Other
  Country: FR (occurrence: FR)
  Receive Date: 20171128
  Receipt Date: 20171128
  Transmission Date: 20180321
  Serious: Yes (Hospitalization)
  Sender: FDA-Public Use
  Company Number: FR-GEHC-2017CSU003873

PATIENT

DRUGS (6)
  1. LEVOTHYROX [Concomitant]
     Active Substance: LEVOTHYROXINE
  2. PERINDOPRIL [Concomitant]
     Active Substance: PERINDOPRIL
  3. OMNIPAQUE [Suspect]
     Active Substance: IOHEXOL
     Indication: DEEP VEIN THROMBOSIS
     Dosage: UNK UNK, SINGLE
     Route: 042
     Dates: start: 20171106, end: 20171106
  4. ELIQUIS [Concomitant]
     Active Substance: APIXABAN
  5. SIMVASTATINE [Concomitant]
     Active Substance: SIMVASTATIN
  6. UVEDOSE [Concomitant]
     Active Substance: CHOLECALCIFEROL

REACTIONS (6)
  - Urinary retention [Recovered/Resolved]
  - Depressed level of consciousness [Recovered/Resolved]
  - Psychomotor retardation [Recovered/Resolved]
  - Faecaloma [Recovered/Resolved]
  - Confusional state [Recovered/Resolved]
  - Hypersensitivity [Recovered/Resolved]

NARRATIVE: CASE EVENT DATE: 20171106
